FAERS Safety Report 24702822 (Version 2)
Quarter: 2024Q4

REPORT INFORMATION
  Report Type: Spontaneous
  Country: US (occurrence: US)
  Receive Date: 20241205
  Receipt Date: 20241219
  Transmission Date: 20250115
  Serious: Yes (Hospitalization, Other)
  Sender: TEVA
  Company Number: US-TEVA-VS-3270310

PATIENT
  Age: 68 Year
  Sex: Male

DRUGS (3)
  1. FLUOXETINE [Suspect]
     Active Substance: FLUOXETINE HYDROCHLORIDE
     Indication: Pain
     Route: 065
  2. PRAZOSIN [Concomitant]
     Active Substance: PRAZOSIN
     Indication: Benign prostatic hyperplasia
     Dosage: RECEIVED NIGHTLY
     Route: 065
  3. BUPROPION\DEXTROMETHORPHAN [Suspect]
     Active Substance: BUPROPION\DEXTROMETHORPHAN
     Indication: Major depression
     Route: 065
     Dates: start: 202308

REACTIONS (12)
  - Serotonin syndrome [Recovering/Resolving]
  - Drug interaction [Unknown]
  - Toxicity to various agents [Recovering/Resolving]
  - Flushing [Recovering/Resolving]
  - Chills [Recovering/Resolving]
  - Confusional state [Recovering/Resolving]
  - Urinary retention [Recovering/Resolving]
  - Dysuria [Recovering/Resolving]
  - Agitation [Recovering/Resolving]
  - Paranoia [Recovering/Resolving]
  - Anxiety [Recovering/Resolving]
  - Hallucinations, mixed [Recovering/Resolving]
